FAERS Safety Report 7201887-X (Version None)
Quarter: 2010Q4

REPORT INFORMATION
  Report Type: 
  Country: None (occurrence: None)
  Receive Date: 20101229
  Receipt Date: 20101220
  Transmission Date: 20110411
  Serious: Yes (Hospitalization)
  Sender: FDA-Public Use
  Company Number: FR-ASTRAZENECA-2010SE60774

PATIENT
  Sex: Female

DRUGS (5)
  1. NEXIUM [Suspect]
     Route: 048
     Dates: start: 20100901, end: 20100920
  2. RAMIPRIL [Suspect]
     Route: 048
     Dates: start: 20100901, end: 20100920
  3. ZYLORIC [Suspect]
     Route: 048
     Dates: start: 20100901, end: 20100920
  4. CORDARONE [Suspect]
     Route: 048
     Dates: start: 20100906, end: 20100908
  5. TAREG [Suspect]
     Route: 048
     Dates: start: 20100901, end: 20100920

REACTIONS (3)
  - CARDIAC FAILURE [None]
  - DEHYDRATION [None]
  - TOXIC SKIN ERUPTION [None]
